FAERS Safety Report 8439662-0 (Version None)
Quarter: 2012Q2

REPORT INFORMATION
  Report Type: 
  Country: None (occurrence: None)
  Receive Date: 20120323
  Receipt Date: 20110527
  Transmission Date: 20120825
  Serious: Yes (Hospitalization)
  Sender: FDA-Public Use
  Company Number: 163-21880-11053794

PATIENT
  Age: 66 Year
  Sex: Male

DRUGS (17)
  1. AMLODIPINE [Concomitant]
  2. LISINOPRIL [Concomitant]
  3. DEXAMETHASONE [Concomitant]
  4. PROCRIT [Concomitant]
  5. CIPROFLOXACIN [Concomitant]
  6. RANITIDINE [Concomitant]
  7. NOVOLIN N+R (INSULIN HUMAN INJECTION, ISOPHANE)(UNKNOWN) [Concomitant]
  8. ARANESP (DARBEPOETIN ALFA)(UNKNOWN) [Concomitant]
  9. ALBUTEROL (SALBUTAMOL)(UNKNOWN) [Concomitant]
  10. SODIUM CHLORIDE 0.9% [Concomitant]
  11. FINASTERIDE (FINASTERIDE)(UNKNOWN [Concomitant]
  12. FENTANYL-100 [Concomitant]
  13. AMOXICILLIN AND CLAVULANATE POTASSIUM [Concomitant]
  14. LENALIDOMIDE [Suspect]
     Indication: MULTIPLE MYELOMA
     Dosage: 25 MG, DAILY, PO, 15 MG, DAILY, PO, 15 MG, X21D, PO
     Route: 048
     Dates: start: 20080301, end: 20080801
  15. WARFARIN SODIUM [Concomitant]
  16. XYCODONE (OXYCODONE)(UNKNOWN) [Concomitant]
  17. COMBIVENT (COMBIVENT)(UNKNOWN) [Concomitant]

REACTIONS (2)
  - LUNG SQUAMOUS CELL CARCINOMA STAGE UNSPECIFIED [None]
  - METASTASES TO LIVER [None]
